FAERS Safety Report 18005587 (Version 1)
Quarter: 2020Q3

REPORT INFORMATION
  Report Type: Spontaneous
  Country: US (occurrence: US)
  Receive Date: 20200710
  Receipt Date: 20200710
  Transmission Date: 20201103
  Serious: No
  Sender: FDA-Public Use
  Company Number: US-GLAXOSMITHKLINE-US2020119301

PATIENT
  Age: 79 Year
  Sex: Female

DRUGS (1)
  1. VOLTAREN ARTHRITIS PAIN [Suspect]
     Active Substance: DICLOFENAC SODIUM
     Indication: OSTEOARTHRITIS
     Dosage: UNK
     Dates: start: 202006

REACTIONS (2)
  - Dry skin [Recovering/Resolving]
  - Therapeutic product effect incomplete [Unknown]

NARRATIVE: CASE EVENT DATE: 202006
